FAERS Safety Report 6260098-5 (Version None)
Quarter: 2009Q3

REPORT INFORMATION
  Report Type: 
  Country: None (occurrence: None)
  Receive Date: 20090706
  Receipt Date: 20090622
  Transmission Date: 20100115
  Serious: Yes (Disabling)
  Sender: FDA-Public Use
  Company Number: 2006-01461

PATIENT
  Age: 59 Year
  Sex: Male
  Weight: 83 kg

DRUGS (10)
  1. VELCADE [Suspect]
     Indication: B-CELL LYMPHOMA
     Dosage: 3 MG, INTRAVENOUS; 2 MG
     Route: 042
     Dates: start: 20060120, end: 20060220
  2. VELCADE [Suspect]
     Indication: B-CELL LYMPHOMA
     Dosage: 3 MG, INTRAVENOUS; 2 MG
     Route: 042
     Dates: end: 20060220
  3. SINTROM [Concomitant]
  4. VALACYCLOVIR HCL [Concomitant]
  5. MABTHERA [Concomitant]
  6. NEXIUM [Concomitant]
  7. POLYETHYLENE GLYCOL 3350 AND ELECTOLYTES [Concomitant]
  8. ARANESP [Concomitant]
  9. ACETAMINOPHEN W/ CODEINE [Concomitant]
  10. CLORAZEPATE DIPOTASSIUM [Concomitant]

REACTIONS (5)
  - AMAUROSIS [None]
  - ARTHRALGIA [None]
  - BALANCE DISORDER [None]
  - MYALGIA [None]
  - THROMBOCYTOPENIA [None]
